FAERS Safety Report 7589362-4 (Version None)
Quarter: 2011Q3

REPORT INFORMATION
  Report Type: 
  Country: None (occurrence: None)
  Receive Date: 20110705
  Receipt Date: 20110404
  Transmission Date: 20111222
  Serious: Yes (Other)
  Sender: FDA-Public Use
  Company Number: GB-CELGENEUS-167-21880-11043580

PATIENT
  Sex: Female
  Weight: 65 kg

DRUGS (4)
  1. OMEPRAZOLE [Concomitant]
     Route: 065
     Dates: start: 20101224
  2. QUININE SULFATE [Concomitant]
     Dosage: 300 MILLIGRAM
     Route: 065
     Dates: start: 20110114, end: 20110315
  3. REVLIMID [Suspect]
     Dosage: 5 MILLIGRAM
     Route: 048
     Dates: start: 20101224, end: 20110315
  4. DEXAMETHASONE [Concomitant]
     Dosage: 1.3333 MILLIGRAM
     Route: 048
     Dates: start: 20101224, end: 20110315

REACTIONS (2)
  - BRONCHOSPASM [None]
  - ERYTHEMA MULTIFORME [None]
